FAERS Safety Report 10810283 (Version 1)
Quarter: 2015Q1

REPORT INFORMATION
  Report Type: Report from Study
  Country: US (occurrence: US)
  Receive Date: 20150217
  Receipt Date: 20150217
  Transmission Date: 20150721
  Serious: No
  Sender: FDA-Public Use
  Company Number: US-ABBVIE-14K-163-1222537-00

PATIENT
  Age: 57 Year
  Sex: Male

DRUGS (6)
  1. CLARITIN-D 12 HOUR [Concomitant]
     Active Substance: LORATADINE\PSEUDOEPHEDRINE SULFATE
     Dosage: STARTED WEENING OFF, 1 EVERY OTHER DAY
     Dates: start: 201403
  2. HUMIRA [Suspect]
     Active Substance: ADALIMUMAB
     Indication: CROHN^S DISEASE
     Dates: start: 20140320, end: 20140320
  3. HUMIRA [Suspect]
     Active Substance: ADALIMUMAB
     Dates: start: 20140403, end: 20140403
  4. CLARITIN-D 12 HOUR [Concomitant]
     Active Substance: LORATADINE\PSEUDOEPHEDRINE SULFATE
     Dates: start: 20140331
  5. HUMIRA [Suspect]
     Active Substance: ADALIMUMAB
  6. CLARITIN-D 12 HOUR [Concomitant]
     Active Substance: LORATADINE\PSEUDOEPHEDRINE SULFATE
     Indication: HYPERSENSITIVITY
     Dosage: DAILY
     Dates: end: 201403

REACTIONS (1)
  - Oropharyngeal pain [Recovered/Resolved]

NARRATIVE: CASE EVENT DATE: 201403
